FAERS Safety Report 21294311 (Version 1)
Quarter: 2022Q3

REPORT INFORMATION
  Report Type: Spontaneous
  Country: US (occurrence: US)
  Receive Date: 20220905
  Receipt Date: 20220905
  Transmission Date: 20221026
  Serious: Yes (Other)
  Sender: FDA-Public Use
  Company Number: US-NOVARTISPH-NVSC2022US197281

PATIENT
  Sex: Male

DRUGS (4)
  1. EVEROLIMUS [Suspect]
     Active Substance: EVEROLIMUS
     Indication: Rhabdomyoma
     Dosage: 0.125 MG ON DAY OF LIFE 8, ACHIEVING A TROUGH BLOOD LEVEL OF 7.4 NG/ML AFTER 48 H
     Route: 065
  2. FLECAINIDE [Concomitant]
     Active Substance: FLECAINIDE
     Indication: Arrhythmia
     Dosage: TITRATED UP TO 130 MG/M2/DAY
     Route: 065
  3. FLECAINIDE [Concomitant]
     Active Substance: FLECAINIDE
     Dosage: DOSE WAS DECREASED (82 MG/M2/DAY)
     Route: 065
  4. PROPRANOLOL [Concomitant]
     Active Substance: PROPRANOLOL HYDROCHLORIDE
     Indication: Arrhythmia
     Dosage: 2 MG/KG, QD
     Route: 065

REACTIONS (3)
  - Neutropenia neonatal [Recovered/Resolved]
  - Product use in unapproved indication [Unknown]
  - Product use issue [Unknown]
